FAERS Safety Report 21115222 (Version 1)
Quarter: 2022Q3

REPORT INFORMATION
  Report Type: Spontaneous
  Country: BR (occurrence: BR)
  Receive Date: 20220721
  Receipt Date: 20220721
  Transmission Date: 20221026
  Serious: Yes (Life-Threatening, Hospitalization, Disabling, Other)
  Sender: FDA-Public Use
  Company Number: BR-BIOGEN-2021BI01039843

PATIENT
  Age: 43 Year
  Sex: Female
  Weight: 88 kg

DRUGS (16)
  1. TYSABRI [Suspect]
     Active Substance: NATALIZUMAB
     Indication: Multiple sclerosis
     Route: 050
     Dates: start: 202106
  2. TYSABRI [Suspect]
     Active Substance: NATALIZUMAB
     Route: 050
     Dates: start: 20210607
  3. TYSABRI [Suspect]
     Active Substance: NATALIZUMAB
     Route: 050
     Dates: start: 202106
  4. DIPHENHYDRAMINE [Suspect]
     Active Substance: DIPHENHYDRAMINE
     Indication: Premedication
     Route: 050
     Dates: start: 20210607
  5. DIPHENHYDRAMINE [Suspect]
     Active Substance: DIPHENHYDRAMINE
     Route: 050
  6. PREDNISOLONE [Concomitant]
     Active Substance: PREDNISOLONE
     Indication: Product used for unknown indication
     Route: 050
  7. FLUOXETINE HYDROCHLORIDE [Concomitant]
     Active Substance: FLUOXETINE HYDROCHLORIDE
     Indication: Anxiety
     Route: 050
     Dates: start: 202008
  8. FLUOXETINE HYDROCHLORIDE [Concomitant]
     Active Substance: FLUOXETINE HYDROCHLORIDE
     Route: 050
     Dates: start: 202006
  9. XARELTO [Concomitant]
     Active Substance: RIVAROXABAN
     Indication: Thrombosis
     Route: 050
     Dates: start: 202009
  10. VITAMIN D [Concomitant]
     Active Substance: VITAMIN D NOS
     Indication: Vitamin supplementation
     Route: 050
  11. LEVOTHYROXINE [Concomitant]
     Active Substance: LEVOTHYROXINE
     Indication: Thyroid hormones decreased
     Route: 050
  12. LEVOTHYROXINE [Concomitant]
     Active Substance: LEVOTHYROXINE
     Route: 050
     Dates: start: 2019
  13. PITAVASTATIN [Concomitant]
     Active Substance: PITAVASTATIN
     Indication: Blood cholesterol
     Dosage: 1 GRAIN
     Route: 050
  14. EZETIMIBE [Concomitant]
     Active Substance: EZETIMIBE
     Indication: Blood cholesterol
     Route: 050
  15. RIVOTRIL [Concomitant]
     Active Substance: CLONAZEPAM
     Indication: Insomnia
     Route: 050
  16. PREGABALIN [Concomitant]
     Active Substance: PREGABALIN
     Indication: Multiple sclerosis relapse
     Route: 050

REACTIONS (25)
  - Multiple sclerosis pseudo relapse [Recovered/Resolved with Sequelae]
  - Fall [Recovered/Resolved]
  - Akinesia [Unknown]
  - Hernia perforation [Unknown]
  - Headache [Not Recovered/Not Resolved]
  - Dental caries [Not Recovered/Not Resolved]
  - Oropharyngeal pain [Not Recovered/Not Resolved]
  - Nasal injury [Not Recovered/Not Resolved]
  - Decreased immune responsiveness [Not Recovered/Not Resolved]
  - Vaginal infection [Recovered/Resolved]
  - Conjunctivitis [Recovered/Resolved]
  - Hordeolum [Recovered/Resolved]
  - Nasal herpes [Recovered/Resolved]
  - Tachycardia [Recovered/Resolved]
  - Somnolence [Recovered/Resolved]
  - Multiple sclerosis relapse [Unknown]
  - Balance disorder [Not Recovered/Not Resolved]
  - Paraesthesia [Not Recovered/Not Resolved]
  - Muscle strain [Unknown]
  - Neurogenic bladder [Unknown]
  - Gastrointestinal injury [Unknown]
  - Bladder disorder [Unknown]
  - Fatigue [Not Recovered/Not Resolved]
  - Nausea [Recovered/Resolved]
  - Chills [Not Recovered/Not Resolved]

NARRATIVE: CASE EVENT DATE: 20210601
